FAERS Safety Report 5366867-8 (Version None)
Quarter: 2007Q2

REPORT INFORMATION
  Report Type: 
  Country: None (occurrence: None)
  Receive Date: 20070622
  Receipt Date: 20061018
  Transmission Date: 20071010
  Serious: No
  Sender: FDA-Public Use
  Company Number: US-ASTRAZENECA-2006UW20052

PATIENT
  Age: 57 Year
  Sex: Male
  Weight: 64.4 kg

DRUGS (2)
  1. RHINOCORT [Suspect]
     Indication: MIDDLE EAR EFFUSION
     Dosage: WEEK 2 + 3 - 1 SPRAY EACH NOSTRIL
     Route: 045
  2. RHINOCORT [Suspect]
     Dosage: WEEK 1 - 2 SPRAYS EACH NOSTRIL
     Route: 045

REACTIONS (2)
  - AGEUSIA [None]
  - ANOSMIA [None]
